FAERS Safety Report 20246375 (Version 1)
Quarter: 2021Q4

REPORT INFORMATION
  Report Type: Spontaneous
  Country: US (occurrence: None)
  Receive Date: 20211228
  Receipt Date: 20211228
  Transmission Date: 20220303
  Serious: Yes (Disabling)
  Sender: FDA-Public Use
  Company Number: None

PATIENT
  Age: 32 Year
  Sex: Female
  Weight: 50.4 kg

DRUGS (11)
  1. CIPRO [Suspect]
     Active Substance: CIPROFLOXACIN HYDROCHLORIDE
     Indication: Urinary tract infection
     Dosage: OTHER QUANTITY : 1 TABLET(S);?FREQUENCY : TWICE A DAY;?
     Route: 048
     Dates: start: 20211011, end: 20211015
  2. MAGNESIUM [Concomitant]
     Active Substance: MAGNESIUM
  3. VITAMIN C [Concomitant]
     Active Substance: ASCORBIC ACID
  4. VITAMIN D [Concomitant]
     Active Substance: VITAMIN D NOS
  5. VITAMIN B12 [Concomitant]
     Active Substance: CYANOCOBALAMIN
  6. COENZYME Q10 [Concomitant]
     Active Substance: DIETARY SUPPLEMENT\UBIDECARENONE
  7. ALPHA LIPOIC ACID [Concomitant]
     Active Substance: .ALPHA.-LIPOIC ACID
  8. Acetyl-Carnitine [Concomitant]
  9. PROPOLIS WAX [Concomitant]
     Active Substance: PROPOLIS WAX
  10. COLLAGEN [Concomitant]
     Active Substance: COLLAGEN
  11. FISH OIL [Concomitant]
     Active Substance: FISH OIL

REACTIONS (14)
  - Arthralgia [None]
  - Gait inability [None]
  - Arthralgia [None]
  - Neck pain [None]
  - Pain in extremity [None]
  - Hallucination [None]
  - Cortisol increased [None]
  - Vitamin B12 decreased [None]
  - Thyroid function test abnormal [None]
  - Vitamin D decreased [None]
  - Tendon pain [None]
  - Arthralgia [None]
  - Panic attack [None]
  - Suicidal ideation [None]

NARRATIVE: CASE EVENT DATE: 20211011
